FAERS Safety Report 23906078 (Version 2)
Quarter: 2024Q3

REPORT INFORMATION
  Report Type: Report from Study
  Country: CO (occurrence: CO)
  Receive Date: 20240527
  Receipt Date: 20240827
  Transmission Date: 20241017
  Serious: Yes (Hospitalization)
  Sender: JOHNSON AND JOHNSON
  Company Number: CO-JNJFOC-20240568225

PATIENT
  Age: 54 Year
  Sex: Male
  Weight: 73 kg

DRUGS (1)
  1. DARZALEX [Suspect]
     Active Substance: DARATUMUMAB
     Indication: Plasma cell myeloma
     Dosage: ADMINISTRATION INTERVAL: WEEKLY ?LAST ADMINISTRATION DATE:03-MAY-2024
     Route: 042
     Dates: start: 20240419

REACTIONS (4)
  - Delirium [Recovering/Resolving]
  - Cardiac disorder [Unknown]
  - Generalised oedema [Unknown]
  - Oedema peripheral [Recovering/Resolving]

NARRATIVE: CASE EVENT DATE: 20240505
